FAERS Safety Report 16212070 (Version 1)
Quarter: 2019Q2

REPORT INFORMATION
  Report Type: Spontaneous
  Country: US (occurrence: US)
  Receive Date: 20190418
  Receipt Date: 20190418
  Transmission Date: 20190711
  Serious: No
  Sender: FDA-Public Use
  Company Number: US-BAUSCH-BL-2019-010919

PATIENT
  Age: 29 Year
  Sex: Male
  Weight: 65.83 kg

DRUGS (5)
  1. XIFAXAN [Suspect]
     Active Substance: RIFAXIMIN
     Dosage: STARTED ONE YEAR LATER AFTER COMPLETING THE FIRST COURSE OF XIFAXAN
     Route: 048
  2. XIFAXAN [Suspect]
     Active Substance: RIFAXIMIN
     Indication: IRRITABLE BOWEL SYNDROME
     Dosage: STARTED APPROXIMATELY 5 YEARS AGO
     Route: 048
  3. LIBRAX [Concomitant]
     Active Substance: CHLORDIAZEPOXIDE HYDROCHLORIDE\CLIDINIUM BROMIDE
     Indication: PRODUCT USED FOR UNKNOWN INDICATION
  4. XIFAXAN [Suspect]
     Active Substance: RIFAXIMIN
     Dosage: STARTED APPROXIMATELY ONE YEAR AFTER COMPLETING THE 2ND COURSE
     Route: 048
  5. HUMIRA [Concomitant]
     Active Substance: ADALIMUMAB
     Indication: PRODUCT USED FOR UNKNOWN INDICATION

REACTIONS (2)
  - Irritable bowel syndrome [Not Recovered/Not Resolved]
  - Symptom recurrence [Not Recovered/Not Resolved]
